FAERS Safety Report 6750180-8 (Version None)
Quarter: 2010Q2

REPORT INFORMATION
  Report Type: 
  Country: None (occurrence: None)
  Receive Date: 20100601
  Receipt Date: 20100521
  Transmission Date: 20101027
  Serious: Yes (Death, Hospitalization, Other)
  Sender: FDA-Public Use
  Company Number: JP-PFIZER INC-2010057010

PATIENT
  Sex: Male
  Weight: 49.4 kg

DRUGS (10)
  1. SUNITINIB MALATE [Suspect]
     Indication: RENAL CELL CARCINOMA
     Dosage: 25 MG, 2X/DAY
     Route: 048
     Dates: start: 20090606, end: 20090702
  2. CONIEL [Concomitant]
     Route: 048
     Dates: start: 20090606
  3. LOXONIN [Concomitant]
     Route: 048
  4. FERROMIA [Concomitant]
     Route: 048
  5. OMEPRAL [Concomitant]
     Route: 048
  6. NOVORAPID [Concomitant]
     Route: 058
  7. LANTUS [Concomitant]
     Route: 058
  8. CANDESARTAN CILEXETIL [Concomitant]
     Route: 048
  9. MYSLEE [Concomitant]
     Route: 048
  10. MAGNESIUM OXIDE [Concomitant]
     Route: 048

REACTIONS (4)
  - ANAEMIA [None]
  - DISEASE PROGRESSION [None]
  - HYPOTHYROIDISM [None]
  - RENAL CELL CARCINOMA [None]
